FAERS Safety Report 16835011 (Version 1)
Quarter: 2019Q3

REPORT INFORMATION
  Report Type: Spontaneous
  Country: US (occurrence: US)
  Receive Date: 20190920
  Receipt Date: 20190920
  Transmission Date: 20191005
  Serious: Yes (Death, Other)
  Sender: FDA-Public Use
  Company Number: US-ALEXION PHARMACEUTICALS INC.-A201914268

PATIENT
  Age: 3 Week

DRUGS (3)
  1. STRENSIQ [Suspect]
     Active Substance: ASFOTASE ALFA
     Indication: HYPOPHOSPHATASIA
     Dosage: 2 MG/KG, SINGLE
     Route: 042
  2. STRENSIQ [Suspect]
     Active Substance: ASFOTASE ALFA
     Dosage: 1 MG/KG, TIW FOR EIGHT WEEKS
     Route: 058
  3. STRENSIQ [Suspect]
     Active Substance: ASFOTASE ALFA
     Dosage: 2 MG/KG, TIW
     Route: 058

REACTIONS (2)
  - Sepsis [Fatal]
  - Lung infection [Fatal]
